FAERS Safety Report 11420138 (Version 1)
Quarter: 2015Q3

REPORT INFORMATION
  Report Type: Report from Study
  Country: FR (occurrence: FR)
  Receive Date: 20150826
  Receipt Date: 20150826
  Transmission Date: 20151125
  Serious: Yes (Hospitalization)
  Sender: FDA-Public Use
  Company Number: FR-GLAXOSMITHKLINE-FR2015GSK121627

PATIENT
  Age: 60 Year
  Sex: Female

DRUGS (10)
  1. SIMVASTATINE [Concomitant]
     Active Substance: SIMVASTATIN
  2. EQUANIL [Concomitant]
     Active Substance: MEPROBAMATE
  3. OMEGA-3-ACID ETHYL ESTERS. [Suspect]
     Active Substance: OMEGA-3-ACID ETHYL ESTERS
     Indication: ISCHAEMIC HEART DISEASE PROPHYLAXIS
     Dosage: UNK
     Dates: start: 20080430
  4. FLUOXETINE [Concomitant]
     Active Substance: FLUOXETINE\FLUOXETINE HYDROCHLORIDE
  5. ODRIK [Concomitant]
     Active Substance: TRANDOLAPRIL
  6. PLAVIX [Concomitant]
     Active Substance: CLOPIDOGREL BISULFATE
  7. NOCTRAN 10 [Concomitant]
     Active Substance: ACEPROMAZINE\ACEPROMETAZINE\CLORAZEPATE DIPOTASSIUM
  8. KARDEGIC [Concomitant]
     Active Substance: ASPIRIN LYSINE
  9. INEGY [Concomitant]
     Active Substance: EZETIMIBE\SIMVASTATIN
  10. BISOPROLOL [Concomitant]
     Active Substance: BISOPROLOL

REACTIONS (2)
  - Ischaemia [Recovered/Resolved]
  - Arteriogram coronary [Recovered/Resolved]

NARRATIVE: CASE EVENT DATE: 20080916
